FAERS Safety Report 25456655 (Version 1)
Quarter: 2025Q2

REPORT INFORMATION
  Report Type: Spontaneous
  Country: GB (occurrence: GB)
  Receive Date: 20250619
  Receipt Date: 20250619
  Transmission Date: 20250716
  Serious: Yes (Hospitalization)
  Sender: TEIKOKU
  Company Number: GB-TPU-TPU-2025-00166

PATIENT

DRUGS (1)
  1. LIDOCAINE HYDROCHLORIDE [Suspect]
     Active Substance: LIDOCAINE HYDROCHLORIDE
     Indication: Rib fracture

REACTIONS (2)
  - Lung disorder [Unknown]
  - Delirium [Unknown]
